FAERS Safety Report 16908069 (Version 1)
Quarter: 2019Q4

REPORT INFORMATION
  Report Type: Spontaneous
  Country: US (occurrence: US)
  Receive Date: 20191011
  Receipt Date: 20191011
  Transmission Date: 20200122
  Serious: No
  Sender: FDA-Public Use
  Company Number: US-009507513-1909USA013009

PATIENT
  Age: 33 Year
  Sex: Female

DRUGS (1)
  1. PREGNYL [Suspect]
     Active Substance: CHORIOGONADOTROPIN ALFA
     Dosage: DOSE: 10 000 UNITS
     Route: 030

REACTIONS (1)
  - Luteinising unruptured follicle syndrome [Unknown]
